FAERS Safety Report 5366495-4 (Version None)
Quarter: 2007Q2

REPORT INFORMATION
  Report Type: 
  Country: None (occurrence: None)
  Receive Date: 20070622
  Receipt Date: 20070612
  Transmission Date: 20071010
  Serious: Yes (Other)
  Sender: FDA-Public Use
  Company Number: US-JNJFOC-20070505396

PATIENT
  Sex: Female

DRUGS (10)
  1. TOPAMAX [Suspect]
     Dosage: 300 MG AM, 400 MG PM; GESTATIONAL WEEKS 30-36
     Route: 048
  2. TOPAMAX [Suspect]
     Dosage: GESTATIONAL WEEKS 28-30
     Route: 048
  3. TOPAMAX [Suspect]
     Dosage: GESTATIONAL WEEKS 17-28
     Route: 048
  4. TOPAMAX [Suspect]
     Dosage: GESTATIONAL WEEKS 14-16
     Route: 048
  5. TOPAMAX [Suspect]
     Dosage: GESTATION 8-13 WEEKS
     Route: 048
  6. TOPAMAX [Suspect]
     Indication: EPILEPSY
     Route: 048
  7. FOLIC ACID [Concomitant]
     Indication: VITAMIN SUPPLEMENTATION
     Route: 048
  8. VITAMIN AND MINERAL PRENATAL SUPPLEMENT W/ FOLIC ACID CAP [Concomitant]
     Indication: VITAMIN SUPPLEMENTATION
     Route: 048
  9. ACETAMINOPHEN [Concomitant]
     Indication: HEADACHE
     Route: 048
  10. ACETAMINOPHEN AND HYDROCODONE BITARTRATE [Concomitant]
     Indication: HEADACHE
     Dosage: 5/325 MG
     Route: 048

REACTIONS (2)
  - DRUG EXPOSURE DURING PREGNANCY [None]
  - PREMATURE BABY [None]
